FAERS Safety Report 5634650-1 (Version None)
Quarter: 2008Q1

REPORT INFORMATION
  Report Type: 
  Country: None (occurrence: None)
  Receive Date: 20080222
  Receipt Date: 20080219
  Transmission Date: 20080703
  Serious: Yes (Death)
  Sender: FDA-Public Use
  Company Number: US-ASTRAZENECA-2007UW05655

PATIENT
  Age: 20237 Day
  Sex: Male

DRUGS (1)
  1. SEROQUEL [Suspect]
     Indication: SCHIZOPHRENIA
     Route: 048
     Dates: start: 20021202, end: 20050509

REACTIONS (2)
  - DEATH [None]
  - TYPE 2 DIABETES MELLITUS [None]
